FAERS Safety Report 5039115-6 (Version None)
Quarter: 2006Q2

REPORT INFORMATION
  Report Type: 
  Country: None (occurrence: None)
  Receive Date: 20060626
  Receipt Date: 20060613
  Transmission Date: 20061013
  Serious: Yes (Other)
  Sender: FDA-Public Use
  Company Number: 225952

PATIENT
  Age: 12 Year
  Sex: Male
  Weight: 53.6 kg

DRUGS (1)
  1. NUTROPIN AQ [Suspect]
     Indication: GROWTH HORMONE DEFICIENCY
     Dosage: 2.6 MG, 6/WEEK, SUBCUTANEOUS
     Route: 058

REACTIONS (1)
  - BASAL CELL CARCINOMA [None]
